FAERS Safety Report 9702161 (Version 2)
Quarter: 2013Q4

REPORT INFORMATION
  Report Type: Spontaneous
  Country: AU (occurrence: AU)
  Receive Date: 20131121
  Receipt Date: 20131202
  Transmission Date: 20140711
  Serious: Yes (Hospitalization, Other)
  Sender: FDA-Public Use
  Company Number: AU-ABBVIE-13P-008-1171843-00

PATIENT
  Sex: Female

DRUGS (6)
  1. CREON [Suspect]
     Indication: PANCREATIC CARCINOMA
     Dosage: 25 000 TDS
  2. MORPHINE [Concomitant]
     Indication: PAIN
  3. FENTANYL [Concomitant]
     Indication: PAIN
  4. PREGABALIN [Concomitant]
     Indication: PAIN
  5. DEXAMETHASONE [Concomitant]
     Indication: PROPHYLAXIS OF NAUSEA AND VOMITING
  6. METOCLOPRAMIDE [Concomitant]
     Indication: PROPHYLAXIS OF NAUSEA AND VOMITING

REACTIONS (1)
  - Jaundice cholestatic [Unknown]
